FAERS Safety Report 4774888-9 (Version None)
Quarter: 2005Q3

REPORT INFORMATION
  Report Type: 
  Country: None (occurrence: None)
  Receive Date: 20050919
  Receipt Date: 20050908
  Transmission Date: 20060218
  Serious: Yes (Hospitalization, Other)
  Sender: FDA-Public Use
  Company Number: 2005125776

PATIENT
  Age: 64 Year
  Sex: Male
  Weight: 114.3065 kg

DRUGS (1)
  1. GLUCOTROL XL [Suspect]
     Indication: DIABETES MELLITUS
     Dosage: 5 MG (5 MG, 1 IN 1 D), ORAL
     Route: 048

REACTIONS (1)
  - MYOCARDIAL INFARCTION [None]
